FAERS Safety Report 25980798 (Version 1)
Quarter: 2025Q4

REPORT INFORMATION
  Report Type: Spontaneous
  Country: JP (occurrence: JP)
  Receive Date: 20251030
  Receipt Date: 20251030
  Transmission Date: 20260118
  Serious: Yes (Other)
  Sender: Unknown Manufacturer
  Company Number: JP-CORZA MEDICAL GMBH-2025-JP-002323

PATIENT

DRUGS (6)
  1. TACHOSIL [Suspect]
     Active Substance: FIBRINOGEN HUMAN\HUMAN THROMBIN
     Indication: Pulmonary pneumatocele
     Dosage: UNK
     Route: 065
  2. BERIPLAST P COMBI [Suspect]
     Active Substance: APROTININ\CALCIUM CHLORIDE\FACTOR XIII CONCENTRATE (HUMAN)\FIBRINOGEN HUMAN\THROMBIN
     Indication: Tissue sealing
     Dosage: UNK
     Route: 065
  3. POLYGLYCOLIC ACID [Suspect]
     Active Substance: POLYGLYCOLIC ACID
     Indication: Tissue sealing
     Dosage: UNKNOWN
     Route: 065
  4. CLOPIDOGREL [Concomitant]
     Active Substance: CLOPIDOGREL BISULFATE
     Indication: Cerebral infarction
     Dosage: UNK
     Route: 065
  5. CANDESARTAN [Concomitant]
     Active Substance: CANDESARTAN
     Indication: Hypertension
     Dosage: UNK
     Route: 065
  6. DEXTROSE [Concomitant]
     Active Substance: DEXTROSE MONOHYDRATE
     Indication: Tissue sealing
     Dosage: 50%
     Route: 065

REACTIONS (2)
  - Pulmonary air leakage [Recovering/Resolving]
  - Off label use [Unknown]
